FAERS Safety Report 19312521 (Version 1)
Quarter: 2021Q2

REPORT INFORMATION
  Report Type: Spontaneous
  Country: US (occurrence: US)
  Receive Date: 20210527
  Receipt Date: 20210527
  Transmission Date: 20210717
  Serious: Yes (Hospitalization, Other)
  Sender: FDA-Public Use
  Company Number: US-BAXTER-2021BAX012467

PATIENT
  Age: 40 Year
  Sex: Female

DRUGS (1)
  1. FUROSEMIDE INJECTION USP [Suspect]
     Active Substance: FUROSEMIDE
     Indication: ACUTE LEFT VENTRICULAR FAILURE
     Route: 065

REACTIONS (4)
  - Neurological decompensation [Recovering/Resolving]
  - Tremor [Recovering/Resolving]
  - Encephalopathy [Recovering/Resolving]
  - Nystagmus [Recovering/Resolving]
